FAERS Safety Report 8014079-1 (Version None)
Quarter: 2011Q4

REPORT INFORMATION
  Report Type: 
  Country: None (occurrence: None)
  Receive Date: 20111229
  Receipt Date: 20111107
  Transmission Date: 20120403
  Serious: Yes (Hospitalization)
  Sender: FDA-Public Use
  Company Number: US-ROCHE-1012537

PATIENT
  Sex: Female

DRUGS (9)
  1. HERCEPTIN [Suspect]
     Indication: BREAST CANCER
     Dosage: OVER 90 MIN (LOADING DOSE) ON DAY 1 OF WK 13 ONLY
     Route: 042
     Dates: start: 20000922
  2. WARFARIN SODIUM [Concomitant]
  3. ALBUTEROL [Concomitant]
  4. CLONIDINE [Suspect]
     Indication: HOT FLUSH
     Dates: end: 20010409
  5. HERCEPTIN [Suspect]
     Dosage: OVER 30 MIN (MAINTENANCE DOSE) QWK  FOR 51WKS STARTING DAY 1 OF WK 14
  6. DOXORUBICIN HCL [Suspect]
     Indication: BREAST CANCER
     Dosage: ON DAY 1 AND FOR 4 CYCLES
     Route: 042
     Dates: start: 20000630
  7. CYCLOPHOSPHAMIDE [Suspect]
     Indication: BREAST CANCER
     Dosage: OVER 30 MIN, ON DAY 1 AND FOR 4 CYCLES
     Route: 042
     Dates: start: 20000630
  8. TAMOXIFEN CITRATE [Concomitant]
     Indication: BREAST CANCER
     Dosage: STARTING ON DAY 1 X 5 YEARS
     Route: 048
     Dates: start: 20000630
  9. PACLITAXEL [Suspect]
     Indication: BREAST CANCER
     Dosage: STARTING DAY 1 OF WK 13 X 4
     Route: 042
     Dates: start: 20000630

REACTIONS (2)
  - MYOCARDIAL INFARCTION [None]
  - PERICARDIAL EFFUSION [None]
